FAERS Safety Report 9000343 (Version 1)
Quarter: 2013Q1

REPORT INFORMATION
  Report Type: Spontaneous
  Country: US (occurrence: US)
  Receive Date: 20130107
  Receipt Date: 20130107
  Transmission Date: 20140127
  Serious: Yes (Hospitalization)
  Sender: FDA-Public Use
  Company Number: US-BIOGENIDEC-2012BI065045

PATIENT
  Age: 63 Year
  Sex: Female

DRUGS (1)
  1. AVONEX [Suspect]
     Indication: MULTIPLE SCLEROSIS
     Route: 030

REACTIONS (7)
  - Diverticulitis [Unknown]
  - Peritonitis [Unknown]
  - Arthropathy [Unknown]
  - Back disorder [Unknown]
  - Underdose [Unknown]
  - Tremor [Unknown]
  - Headache [Recovered/Resolved]
